FAERS Safety Report 12054353 (Version 1)
Quarter: 2016Q1

REPORT INFORMATION
  Report Type: Report from Study
  Country: ES (occurrence: ES)
  Receive Date: 20160209
  Receipt Date: 20160209
  Transmission Date: 20160526
  Serious: Yes (Hospitalization, Other)
  Sender: FDA-Public Use
  Company Number: ES-VIIV HEALTHCARE LIMITED-ES2016GSK016921

PATIENT
  Age: 64 Year
  Sex: Male

DRUGS (6)
  1. ENALAPRIL MALEATE. [Suspect]
     Active Substance: ENALAPRIL MALEATE
     Indication: CARDIAC FAILURE
     Dosage: 20 MG, QD
     Route: 048
     Dates: start: 2009, end: 20150226
  2. EMCONCOR [Concomitant]
     Active Substance: BISOPROLOL FUMARATE
     Indication: ISCHAEMIC CARDIOMYOPATHY
     Route: 048
     Dates: start: 2009
  3. EPLERENONA APOTEX COMPRIMIDOS RECUBIERTOS CON PELICULA [Interacting]
     Active Substance: EPLERENONE
     Indication: CARDIAC FAILURE
     Route: 048
     Dates: start: 201311, end: 20150226
  4. METFORMIN [Concomitant]
     Active Substance: METFORMIN HYDROCHLORIDE
     Indication: DIABETES MELLITUS
     Route: 048
     Dates: start: 2006, end: 20150226
  5. FUROSEMIDE. [Interacting]
     Active Substance: FUROSEMIDE
     Indication: CARDIAC FAILURE
     Route: 048
     Dates: start: 2009, end: 20150226
  6. KIVEXA [Interacting]
     Active Substance: ABACAVIR SULFATE\LAMIVUDINE
     Indication: HIV INFECTION
     Route: 048
     Dates: start: 201003

REACTIONS (1)
  - Acute kidney injury [Recovered/Resolved]

NARRATIVE: CASE EVENT DATE: 20150226
